FAERS Safety Report 21871352 (Version 1)
Quarter: 2023Q1

REPORT INFORMATION
  Report Type: Spontaneous
  Country: GB (occurrence: GB)
  Receive Date: 20230117
  Receipt Date: 20230117
  Transmission Date: 20230418
  Serious: Yes (Other)
  Sender: FDA-Public Use
  Company Number: GB-MYLANLABS-2023M1003512

PATIENT
  Age: 46 Year
  Sex: Male

DRUGS (11)
  1. CLINDAMYCIN [Suspect]
     Active Substance: CLINDAMYCIN
     Indication: Alopecia scarring
     Dosage: UNK
     Route: 048
  2. CLINDAMYCIN [Suspect]
     Active Substance: CLINDAMYCIN
     Indication: Antibiotic therapy
  3. RIFAMPIN [Suspect]
     Active Substance: RIFAMPIN
     Indication: Alopecia scarring
     Dosage: UNK
     Route: 048
  4. RIFAMPIN [Suspect]
     Active Substance: RIFAMPIN
     Indication: Antibiotic therapy
  5. CIPROFLOXACIN [Suspect]
     Active Substance: CIPROFLOXACIN
     Indication: Alopecia scarring
     Dosage: UNK
     Route: 048
  6. CIPROFLOXACIN [Suspect]
     Active Substance: CIPROFLOXACIN
     Indication: Antibiotic therapy
  7. ERYTHROMYCIN [Suspect]
     Active Substance: ERYTHROMYCIN
     Indication: Alopecia scarring
     Dosage: UNK
     Route: 048
  8. ERYTHROMYCIN [Suspect]
     Active Substance: ERYTHROMYCIN
     Indication: Antibiotic therapy
  9. DAPSONE [Suspect]
     Active Substance: DAPSONE
     Indication: Alopecia scarring
     Dosage: UNK
     Route: 065
  10. TRIAMCINOLONE [Suspect]
     Active Substance: TRIAMCINOLONE
     Indication: Alopecia scarring
     Dosage: UNK
     Route: 026
  11. ACITRETIN [Suspect]
     Active Substance: ACITRETIN
     Indication: Alopecia scarring
     Dosage: UNK
     Route: 065

REACTIONS (1)
  - Drug ineffective [Unknown]
